FAERS Safety Report 17780660 (Version 1)
Quarter: 2020Q2

REPORT INFORMATION
  Report Type: Report from Study
  Country: FR (occurrence: FR)
  Receive Date: 20200514
  Receipt Date: 20200514
  Transmission Date: 20200714
  Serious: Yes (Hospitalization)
  Sender: FDA-Public Use
  Company Number: NVSC2020FR128659

PATIENT
  Age: 18 Year
  Sex: Male
  Weight: 84 kg

DRUGS (12)
  1. SEROPLEX [Concomitant]
     Active Substance: ESCITALOPRAM OXALATE
     Indication: ANXIETY
     Dosage: 20 MG IN MORNING
     Route: 048
  2. DEXAMETHASONE. [Suspect]
     Active Substance: DEXAMETHASONE
     Indication: CHEMOTHERAPY
     Dosage: 40 MG
     Route: 042
     Dates: start: 20200423, end: 20200424
  3. BACTRIM [Concomitant]
     Active Substance: SULFAMETHOXAZOLE\TRIMETHOPRIM
     Indication: PRODUCT USED FOR UNKNOWN INDICATION
     Dosage: 1.0, 1 TABLET, EVERY MONDAY, WEDNESDAY, FRIDAY IN THE MORNING
     Route: 048
     Dates: start: 20200325
  4. VINCRISTINE [Suspect]
     Active Substance: VINCRISTINE
     Indication: CHEMOTHERAPY
     Dosage: 2 MG
     Route: 042
     Dates: start: 20200423, end: 20200423
  5. XANAX [Concomitant]
     Active Substance: ALPRAZOLAM
     Indication: STRESS
     Dosage: 0.5 MG, IF NECESSARY
     Route: 048
     Dates: start: 20200325
  6. DOLIPRANE [Concomitant]
     Active Substance: ACETAMINOPHEN
     Indication: PRODUCT USED FOR UNKNOWN INDICATION
     Dosage: 1000 MG X EVERY 6H IF NECESSARY
     Route: 048
     Dates: start: 20200325
  7. LOXAPAC [Concomitant]
     Active Substance: LOXAPINE
     Indication: AFFECTIVE DISORDER
     Dosage: 15 MGIN THE MORNING, IN THE EVENING
     Route: 048
  8. BICARBONATE SODIUM [Concomitant]
     Active Substance: SODIUM BICARBONATE
     Indication: PROPHYLAXIS
     Dosage: 1.4%
     Route: 048
     Dates: start: 20200325
  9. PANTOPRAZOLE [Concomitant]
     Active Substance: PANTOPRAZOLE
     Indication: PROPHYLAXIS
     Dosage: 40 MG IN MORNING
     Route: 048
     Dates: start: 20200325
  10. NILOTINIB [Suspect]
     Active Substance: NILOTINIB
     Indication: ACUTE LYMPHOCYTIC LEUKAEMIA
     Dosage: 800 MG, UNK
     Route: 048
     Dates: start: 20200402
  11. ZELITREX [Concomitant]
     Active Substance: VALACYCLOVIR HYDROCHLORIDE
     Indication: PROPHYLAXIS
     Dosage: 500 MG IN THE MORNING, IN THE EVENING
     Route: 048
     Dates: start: 20200325
  12. ATARAX [Concomitant]
     Active Substance: HYDROXYZINE HYDROCHLORIDE
     Indication: STRESS
     Dosage: 50 MG, IF NECESSARY
     Route: 048
     Dates: start: 20200325

REACTIONS (1)
  - Generalised tonic-clonic seizure [Recovered/Resolved]

NARRATIVE: CASE EVENT DATE: 20200430
